FAERS Safety Report 6423569-4 (Version None)
Quarter: 2009Q4

REPORT INFORMATION
  Report Type: 
  Country: None (occurrence: None)
  Receive Date: 20091030
  Receipt Date: 20091030
  Transmission Date: 20100525
  Serious: Yes (Life-Threatening, Other)
  Sender: FDA-Public Use
  Company Number: None

PATIENT
  Age: 57 Year
  Sex: Female
  Weight: 72.5755 kg

DRUGS (3)
  1. PROPAFENONE HCL [Suspect]
     Indication: ARRHYTHMIA
     Dosage: 225 MG. 2X/DAY OR 3X/ /DAY BUCCAL
     Route: 002
     Dates: start: 20081122, end: 20090509
  2. PROPAFENONE HCL [Suspect]
     Indication: ARRHYTHMIA
     Dosage: 150 MG. 2X/DAY OR 3X/ /DAY BUCCAL
     Route: 002
     Dates: start: 20081122, end: 20090509
  3. PROPAFENONE HCL [Suspect]
     Dosage: 300MG. 2 OR 3 DTIMES PER BUCCAL
     Route: 002
     Dates: start: 20081205, end: 20090509

REACTIONS (13)
  - ABDOMINAL PAIN [None]
  - ARRHYTHMIA [None]
  - ASTHENIA [None]
  - CHEST DISCOMFORT [None]
  - DEHYDRATION [None]
  - DIZZINESS [None]
  - ECONOMIC PROBLEM [None]
  - HEADACHE [None]
  - HYPERHIDROSIS [None]
  - HYPOTENSION [None]
  - MALAISE [None]
  - PULSE PRESSURE DECREASED [None]
  - SYNCOPE [None]
